FAERS Safety Report 4975460-8 (Version None)
Quarter: 2006Q2

REPORT INFORMATION
  Report Type: 
  Country: None (occurrence: None)
  Receive Date: 20060410
  Receipt Date: 20060406
  Transmission Date: 20061013
  Serious: Yes (Death)
  Sender: FDA-Public Use
  Company Number: AT-2006-007876

PATIENT
  Age: 19 Year
  Sex: Female
  Weight: 60 kg

DRUGS (1)
  1. YASMIN [Suspect]
     Indication: ORAL CONTRACEPTION
     Dosage: 3 MG, 21D/28D, ORAL
     Route: 048
     Dates: start: 20060201, end: 20060310

REACTIONS (5)
  - BRAIN OEDEMA [None]
  - CEREBRAL ISCHAEMIA [None]
  - HYPOXIC ENCEPHALOPATHY [None]
  - PULMONARY EMBOLISM [None]
  - THROMBOSIS [None]
